FAERS Safety Report 9537306 (Version 1)
Quarter: 2013Q3

REPORT INFORMATION
  Report Type: Spontaneous
  Country: US (occurrence: US)
  Receive Date: 20130919
  Receipt Date: 20130919
  Transmission Date: 20140515
  Serious: Yes (Other)
  Sender: FDA-Public Use
  Company Number: PHHY2013US102759

PATIENT
  Age: 17 Year
  Sex: Female

DRUGS (2)
  1. DEFERASIROX [Suspect]
     Indication: SICKLE CELL ANAEMIA
     Dosage: 1000 MG PER DAY
     Route: 048
  2. DEFERASIROX [Suspect]
     Dosage: 500 MG PER DAY
     Route: 048

REACTIONS (2)
  - Maculopathy [Unknown]
  - Visual acuity reduced [Recovering/Resolving]
